FAERS Safety Report 7397950-3 (Version None)
Quarter: 2011Q2

REPORT INFORMATION
  Report Type: 
  Country: None (occurrence: None)
  Receive Date: 20110406
  Receipt Date: 20101014
  Transmission Date: 20111010
  Serious: Yes (Hospitalization, Other)
  Sender: FDA-Public Use
  Company Number: US-BAYER-201010021NA

PATIENT
  Sex: Female
  Weight: 54.422 kg

DRUGS (14)
  1. PRILOSEC [Concomitant]
     Dosage: UNK
     Dates: start: 20090516
  2. OXYCODONE [Concomitant]
     Dosage: UNK
     Dates: start: 20091018
  3. YAZ [Suspect]
     Indication: PREMENSTRUAL SYNDROME
     Dosage: UNK UNK, QD
     Route: 048
     Dates: start: 20080101, end: 20090101
  4. MORPHINE [Concomitant]
     Dosage: UNK
     Route: 042
     Dates: start: 20090805
  5. ZOFRAN [Concomitant]
     Dosage: UNK
     Dates: start: 20090805
  6. ALBUTEROL [Concomitant]
  7. PROMETHAZINE [Concomitant]
     Dosage: UNK
     Dates: start: 20091018
  8. YASMIN [Suspect]
     Indication: PREMENSTRUAL SYNDROME
     Route: 048
  9. OMEPRAZOLE [Concomitant]
     Dosage: UNK
     Dates: start: 20091018
  10. YAZ [Suspect]
     Dosage: UNK
     Dates: start: 20090204
  11. IBUPROFEN [Concomitant]
  12. PROAIR HFA [Concomitant]
  13. DONNATAL [Concomitant]
     Dosage: UNK
     Dates: start: 20090516
  14. UNCODEABLE ^UNCLASSIFIABLE^ [Concomitant]
     Dosage: UNK
     Dates: start: 20091018

REACTIONS (3)
  - CHOLECYSTITIS CHRONIC [None]
  - CHOLELITHIASIS [None]
  - CHOLECYSTECTOMY [None]
